FAERS Safety Report 6077670-8 (Version None)
Quarter: 2009Q1

REPORT INFORMATION
  Report Type: 
  Country: None (occurrence: None)
  Receive Date: 20090211
  Receipt Date: 20090128
  Transmission Date: 20090719
  Serious: Yes (Other)
  Sender: FDA-Public Use
  Company Number: 2008S1003568

PATIENT
  Age: 32 Year
  Sex: Female

DRUGS (2)
  1. FEXOFENADINE HYDROCHLORIDE [Suspect]
     Indication: HYPERSENSITIVITY
     Dosage: 180 MG; AS NEEDED; ORAL
     Route: 048
     Dates: start: 20080209, end: 20080301
  2. ZADITEN /00495202/ [Concomitant]

REACTIONS (2)
  - ABORTION SPONTANEOUS [None]
  - DRUG EXPOSURE DURING PREGNANCY [None]
